FAERS Safety Report 20524175 (Version 1)
Quarter: 2022Q1

REPORT INFORMATION
  Report Type: Spontaneous
  Country: US (occurrence: US)
  Receive Date: 20220228
  Receipt Date: 20220228
  Transmission Date: 20220424
  Serious: Yes (Hospitalization)
  Sender: FDA-Public Use
  Company Number: US-BIOGEN-2022BI01100662

PATIENT
  Sex: Male
  Weight: 109.87 kg

DRUGS (5)
  1. TECFIDERA [Suspect]
     Active Substance: DIMETHYL FUMARATE
     Indication: Multiple sclerosis
     Dosage: MAINTENANCE DOSE
     Route: 048
  2. MODERNA COVID-19 VACCINE [Concomitant]
     Active Substance: ELASOMERAN
     Indication: COVID-19 prophylaxis
     Route: 065
  3. PNEUMOVAX 23 [Concomitant]
     Active Substance: PNEUMOCOCCAL VACCINE, POLYVALENT 23
     Indication: Product used for unknown indication
     Route: 065
  4. FLUZONE HIGH-DOSE PF [Concomitant]
     Indication: Product used for unknown indication
     Route: 065
  5. FLUZONE QUADRIVALENT NOS [Concomitant]
     Active Substance: INFLUENZA A VIRUS A/CALIFORNIA/7/2009 X-179A (H1N1) ANTIGEN (FORMALDEHYDE INACTIVATED)\INFLUENZA A V
     Indication: Product used for unknown indication
     Route: 065
     Dates: start: 2018

REACTIONS (2)
  - Dyspnoea [Unknown]
  - Transfusion related complication [Unknown]
